FAERS Safety Report 8217264 (Version 6)
Quarter: 2013Q4

REPORT INFORMATION
  Report Type: Report from Study
  Country: CA (occurrence: CA)
  Receive Date: 20111101
  Receipt Date: 20131226
  Transmission Date: 20140711
  Serious: Yes (Other)
  Sender: FDA-Public Use
  Company Number: PHHY2011CA95294

PATIENT
  Age: 41 Year
  Sex: Female

DRUGS (3)
  1. ZOMETA [Suspect]
     Indication: BREAST CANCER METASTATIC
     Dosage: 4 MG, ONCE IN A MONTH
     Route: 042
     Dates: start: 20110314
  2. ZOMETA [Suspect]
     Dosage: 4 MG, UNK
     Route: 042
     Dates: start: 20121026
  3. ZOMETA [Suspect]
     Dosage: 4 MG, EVERY 3 MONTHS
     Route: 042
     Dates: start: 20110314

REACTIONS (5)
  - Bone lesion [Unknown]
  - Foot fracture [Recovering/Resolving]
  - Pain in extremity [Unknown]
  - Injection site swelling [Recovering/Resolving]
  - Drug ineffective [Unknown]
